FAERS Safety Report 12282741 (Version 1)
Quarter: 2016Q2

REPORT INFORMATION
  Report Type: Report from Study
  Country: US (occurrence: US)
  Receive Date: 20160419
  Receipt Date: 20160419
  Transmission Date: 20160815
  Serious: Yes (Hospitalization)
  Sender: FDA-Public Use
  Company Number: US-PFIZER INC-2016200782

PATIENT
  Age: 42 Year
  Sex: Female

DRUGS (2)
  1. VERAPAMIL HCL [Suspect]
     Active Substance: VERAPAMIL HYDROCHLORIDE
     Indication: HYPERTENSION
     Dosage: UNK
  2. CITALOPRAM [Suspect]
     Active Substance: CITALOPRAM HYDROBROMIDE
     Dosage: UNK

REACTIONS (8)
  - Bradycardia [Unknown]
  - Rhabdomyolysis [Unknown]
  - Cardiac arrest [Unknown]
  - Acute respiratory distress syndrome [Unknown]
  - Coma [Unknown]
  - Toxicity to various agents [Unknown]
  - Metabolic acidosis [Unknown]
  - Acute kidney injury [Unknown]
